FAERS Safety Report 10565156 (Version 1)
Quarter: 2014Q4

REPORT INFORMATION
  Report Type: Spontaneous
  Country: US (occurrence: None)
  Receive Date: 20141104
  Receipt Date: 20141104
  Transmission Date: 20150529
  Serious: No
  Sender: FDA-Public Use
  Company Number: None

PATIENT
  Age: 54 Year
  Sex: Female

DRUGS (1)
  1. HUMIRA [Suspect]
     Active Substance: ADALIMUMAB
     Indication: RHEUMATOID ARTHRITIS
     Route: 058
     Dates: start: 20141021

REACTIONS (5)
  - Tremor [None]
  - Erythema [None]
  - Cheilitis [None]
  - Inflammation [None]
  - Glossitis [None]

NARRATIVE: CASE EVENT DATE: 20141022
